FAERS Safety Report 12945234 (Version 1)
Quarter: 2016Q4

REPORT INFORMATION
  Report Type: Spontaneous
  Country: DE (occurrence: DE)
  Receive Date: 20161115
  Receipt Date: 20161115
  Transmission Date: 20170207
  Serious: Yes (Other)
  Sender: FDA-Public Use
  Company Number: DE-BAUSCH-BL-2016-027534

PATIENT
  Sex: Female

DRUGS (1)
  1. ZYKLOLAT EDO [Suspect]
     Active Substance: CYCLOPENTOLATE
     Indication: POSTOPERATIVE CARE
     Route: 065

REACTIONS (3)
  - Dizziness [Unknown]
  - General physical health deterioration [Unknown]
  - Balance disorder [Unknown]
